FAERS Safety Report 8952702 (Version 1)
Quarter: 2012Q4

REPORT INFORMATION
  Report Type: 
  Country: US (occurrence: US)
  Receive Date: 20121205
  Receipt Date: 20121205
  Transmission Date: 20130627
  Serious: No
  Sender: FDA-Public Use
  Company Number: US-ASTRAZENECA-2012SE87337

PATIENT
  Age: 88 Year
  Sex: Female
  Weight: 79.4 kg

DRUGS (3)
  1. PRILOSEC [Suspect]
     Indication: ANXIETY
     Route: 048
     Dates: start: 2011
  2. VENLAFAXINE [Concomitant]
     Indication: ANXIETY
  3. BUSPIRONE [Concomitant]
     Indication: ANXIETY

REACTIONS (7)
  - Decreased appetite [Unknown]
  - Dyspnoea [Unknown]
  - Anxiety [Unknown]
  - Abdominal discomfort [Unknown]
  - Flatulence [Unknown]
  - Intentional drug misuse [Unknown]
  - Drug ineffective [Unknown]
